FAERS Safety Report 5798835-6 (Version None)
Quarter: 2008Q2

REPORT INFORMATION
  Report Type: 
  Country: None (occurrence: None)
  Receive Date: 20080630
  Receipt Date: 20080616
  Transmission Date: 20081010
  Serious: Yes (Death, Life-Threatening)
  Sender: FDA-Public Use
  Company Number: 001367

PATIENT
  Age: 58 Year
  Sex: Male

DRUGS (7)
  1. BUSULFEX [Suspect]
     Indication: STEM CELL TRANSPLANT
     Dosage: 460 MG INTRAVENOUS
     Route: 042
     Dates: start: 20070906, end: 20070907
  2. PHENYTOIN [Concomitant]
  3. NEUPOGEN [Concomitant]
  4. MITOXANTRONE HYDROCHLORIDE        (MITOXANTRONE HYDROCHLORIDE) [Concomitant]
  5. METHOTREXATE [Concomitant]
  6. CYCLOSPORINE [Concomitant]
  7. MITOXANTRONE HYDROCHLORIDE (MITOXANTRONE HYDROCHLORIDE) [Concomitant]

REACTIONS (9)
  - ACUTE MYELOID LEUKAEMIA RECURRENT [None]
  - ANOREXIA [None]
  - ENTEROCOLITIS [None]
  - FEBRILE NEUTROPENIA [None]
  - GRAFT VERSUS HOST DISEASE [None]
  - MALAISE [None]
  - NAUSEA [None]
  - STOMATITIS [None]
  - VOMITING [None]
